FAERS Safety Report 11787103 (Version 2)
Quarter: 2015Q4

REPORT INFORMATION
  Report Type: Spontaneous
  Country: TZ (occurrence: TZ)
  Receive Date: 20151130
  Receipt Date: 20151216
  Transmission Date: 20160305
  Serious: Yes (Other)
  Sender: FDA-Public Use
  Company Number: TZ-GLAXOSMITHKLINE-TZ2015GSK166922

PATIENT
  Age: 37 Year
  Sex: Male

DRUGS (1)
  1. AVAMYS [Suspect]
     Active Substance: FLUTICASONE FUROATE
     Indication: RHINITIS ALLERGIC
     Dosage: 110 UNK, QD
     Dates: start: 201508, end: 201508

REACTIONS (5)
  - Fatigue [Recovered/Resolved]
  - Oropharyngeal discomfort [Recovered/Resolved]
  - Cough [Recovered/Resolved]
  - Choking [Recovered/Resolved]
  - Throat irritation [Recovered/Resolved]

NARRATIVE: CASE EVENT DATE: 201508
